FAERS Safety Report 8590135-4 (Version None)
Quarter: 2012Q3

REPORT INFORMATION
  Report Type: 
  Country: None (occurrence: None)
  Receive Date: 20120813
  Receipt Date: 20120801
  Transmission Date: 20120928
  Serious: Yes (Hospitalization, Other)
  Sender: FDA-Public Use
  Company Number: US-009507513-1203USA02831

PATIENT

DRUGS (12)
  1. FOSAMAX [Suspect]
     Route: 048
  2. NEXIUM [Concomitant]
     Dosage: 40 MG, QD
  3. TOPROL-XL [Concomitant]
     Dosage: 25 MG, QD
  4. ESTROGENS (UNSPECIFIED) [Concomitant]
     Dosage: UNK
     Dates: start: 19950101
  5. FOSAMAX [Suspect]
     Dosage: 70 MG, QW
     Route: 048
     Dates: start: 20001101, end: 20100601
  6. PATANOL [Concomitant]
  7. FOSAMAX [Suspect]
     Indication: OSTEOPOROSIS
     Dosage: 10 MG, UNK
     Route: 048
     Dates: start: 20000101, end: 20001001
  8. VITAMIN D [Concomitant]
     Dosage: 1000 IU, QD
     Dates: start: 20080101
  9. UNIRETIC [Concomitant]
     Dosage: 15/25 MG  DAILY
  10. METOPROLOL [Concomitant]
  11. CALCIUM CARBONATE [Concomitant]
     Dosage: 2 TABLETS DAILY
     Dates: start: 20080101
  12. ASTELIN [Concomitant]

REACTIONS (36)
  - SYNOVIAL CYST [None]
  - COLON ADENOMA [None]
  - URINARY TRACT INFECTION [None]
  - STRESS FRACTURE [None]
  - SOMNOLENCE [None]
  - WRIST DEFORMITY [None]
  - ARTHROPOD BITE [None]
  - CERVICOBRACHIAL SYNDROME [None]
  - LUMBAR SPINAL STENOSIS [None]
  - ANAEMIA [None]
  - PUBIS FRACTURE [None]
  - OSTEOARTHRITIS [None]
  - CONJUNCTIVITIS [None]
  - VIRAL UPPER RESPIRATORY TRACT INFECTION [None]
  - SPINAL CORD DRAINAGE [None]
  - OSTEOPENIA [None]
  - PAIN IN EXTREMITY [None]
  - NAUSEA [None]
  - SPONDYLOLISTHESIS [None]
  - ECTOPIC PREGNANCY [None]
  - LOW TURNOVER OSTEOPATHY [None]
  - MEDICAL DEVICE REMOVAL [None]
  - LIMB INJURY [None]
  - ILEUS [None]
  - BACK PAIN [None]
  - PELVIC FRACTURE [None]
  - DERMATITIS CONTACT [None]
  - ARTHRALGIA [None]
  - CONSTIPATION [None]
  - RADICULOPATHY [None]
  - SALPINGO-OOPHORECTOMY UNILATERAL [None]
  - FEMUR FRACTURE [None]
  - FOOT FRACTURE [None]
  - HERPES DERMATITIS [None]
  - MUSCULAR WEAKNESS [None]
  - STRESS ULCER [None]
